FAERS Safety Report 16165378 (Version 2)
Quarter: 2019Q3

REPORT INFORMATION
  Report Type: Report from Study
  Country: US (occurrence: US)
  Receive Date: 20190405
  Receipt Date: 20190804
  Transmission Date: 20191004
  Serious: Yes (Death, Hospitalization, Disabling)
  Sender: FDA-Public Use
  Company Number: PHHY2018US134884

PATIENT
  Age: 58 Year
  Sex: Female
  Weight: 124.9 kg

DRUGS (3)
  1. CYCLOPHOSPHAMIDE. [Concomitant]
     Active Substance: CYCLOPHOSPHAMIDE
     Indication: LYMPHOCYTE COUNT INCREASED
     Route: 065
     Dates: start: 20180927, end: 20180929
  2. KYMRIAH [Suspect]
     Active Substance: TISAGENLECLEUCEL
     Indication: DIFFUSE LARGE B-CELL LYMPHOMA
     Dosage: 0.5 X 10^6 VARIABLE TCELL/KG , ONCE/SINGLE
     Route: 042
     Dates: start: 20181002
  3. FLUDARABINE [Concomitant]
     Active Substance: FLUDARABINE PHOSPHATE
     Indication: LYMPHOCYTE COUNT INCREASED
     Route: 065
     Dates: start: 20180927, end: 20180929

REACTIONS (13)
  - C-reactive protein increased [Recovering/Resolving]
  - Malaise [Unknown]
  - Cytokine release syndrome [Recovering/Resolving]
  - Neurotoxicity [Recovering/Resolving]
  - Agitation [Recovering/Resolving]
  - Death [Fatal]
  - Lymphadenopathy [Recovering/Resolving]
  - Pyrexia [Recovered/Resolved]
  - Pain [Unknown]
  - Confusional state [Recovering/Resolving]
  - Delirium [Recovering/Resolving]
  - Serum ferritin increased [Recovering/Resolving]
  - Dyspnoea [Unknown]

NARRATIVE: CASE EVENT DATE: 20181015
